FAERS Safety Report 6781751-0 (Version None)
Quarter: 2010Q2

REPORT INFORMATION
  Report Type: 
  Country: None (occurrence: None)
  Receive Date: 20100618
  Receipt Date: 20100618
  Transmission Date: 20101027
  Serious: Yes (Hospitalization)
  Sender: FDA-Public Use
  Company Number: None

PATIENT
  Age: 81 Year
  Sex: Male
  Weight: 104 kg

DRUGS (2)
  1. CLOPIDOGREL [Suspect]
     Indication: CORONARY ANGIOPLASTY
     Dosage: 75 MG EVERY DAY PO
     Route: 048
     Dates: start: 20090416
  2. ASPIRIN [Suspect]
     Indication: CORONARY ANGIOPLASTY

REACTIONS (8)
  - ANAEMIA [None]
  - ANGINA PECTORIS [None]
  - GASTRIC HAEMORRHAGE [None]
  - GASTROINTESTINAL HAEMORRHAGE [None]
  - HYPOTENSION [None]
  - INTESTINAL POLYP [None]
  - JEJUNAL ULCER [None]
  - ORTHOSTATIC INTOLERANCE [None]
